FAERS Safety Report 23435987 (Version 2)
Quarter: 2024Q1

REPORT INFORMATION
  Report Type: Spontaneous
  Country: PT (occurrence: PT)
  Receive Date: 20240124
  Receipt Date: 20240302
  Transmission Date: 20240409
  Serious: Yes (Other)
  Sender: FDA-Public Use
  Company Number: PT-009507513-2401PRT001110

PATIENT
  Age: 80 Year
  Sex: Male

DRUGS (1)
  1. ERTAPENEM [Suspect]
     Active Substance: ERTAPENEM
     Indication: Anti-infective therapy
     Dosage: UNK
     Route: 065
     Dates: start: 20231117

REACTIONS (6)
  - Bacteraemia [Unknown]
  - Intervertebral discitis [Unknown]
  - Disease complication [Unknown]
  - Bursa removal [Unknown]
  - Pathogen resistance [Unknown]
  - Klebsiella infection [Unknown]

NARRATIVE: CASE EVENT DATE: 20230101
